FAERS Safety Report 8295469-9 (Version None)
Quarter: 2012Q2

REPORT INFORMATION
  Report Type: 
  Country: None (occurrence: None)
  Receive Date: 20120418
  Receipt Date: 20111229
  Transmission Date: 20120825
  Serious: No
  Sender: FDA-Public Use
  Company Number: US-ASTRAZENECA-2010SE49925

PATIENT
  Age: 46 Year
  Sex: Female

DRUGS (2)
  1. PREVACID [Concomitant]
  2. NEXIUM [Suspect]
     Route: 048

REACTIONS (6)
  - DYSPHAGIA [None]
  - DYSPEPSIA [None]
  - VOMITING [None]
  - APHAGIA [None]
  - MALAISE [None]
  - DRUG DOSE OMISSION [None]
